FAERS Safety Report 4432730-X (Version None)
Quarter: 2004Q3

REPORT INFORMATION
  Report Type: 
  Country: None (occurrence: None)
  Receive Date: 20040820
  Receipt Date: 20040805
  Transmission Date: 20050211
  Serious: Yes (Other)
  Sender: FDA-Public Use
  Company Number: 2004-0007184

PATIENT
  Age: 63 Year
  Sex: Female
  Weight: 63 kg

DRUGS (4)
  1. HEPSERA [Suspect]
     Indication: HEPATITIS B
     Dosage: 10 MG, 1 IN 1 D, ORAL
     Route: 048
     Dates: start: 20040330
  2. FLIXOTIDE (FLUTICASONE) [Concomitant]
  3. COMBIVENT [Concomitant]
  4. THEOPHYLLINE [Concomitant]

REACTIONS (9)
  - DRUG INTOLERANCE [None]
  - NAUSEA [None]
  - PRURIGO [None]
  - RASH GENERALISED [None]
  - RASH PRURITIC [None]
  - SCRATCH [None]
  - SKIN LESION [None]
  - VOMITING [None]
  - WEIGHT DECREASED [None]
